FAERS Safety Report 19741332 (Version 1)
Quarter: 2021Q3

REPORT INFORMATION
  Report Type: Spontaneous
  Country: GB (occurrence: GB)
  Receive Date: 20210824
  Receipt Date: 20210824
  Transmission Date: 20211014
  Serious: Yes (Other)
  Sender: FDA-Public Use
  Company Number: GB-ASCEND THERAPEUTICS US, LLC-2115579

PATIENT
  Age: 59 Year
  Sex: Female
  Weight: 67 kg

DRUGS (3)
  1. ESTROGEL [Suspect]
     Active Substance: ESTRADIOL
     Indication: HORMONE REPLACEMENT THERAPY
     Route: 062
     Dates: start: 20210609, end: 20210809
  2. ESTROGEL [Suspect]
     Active Substance: ESTRADIOL
  3. OESTROGEL(ESTRADIOL)(GEL) [Suspect]
     Active Substance: ESTRADIOL
     Route: 062
     Dates: start: 20210609, end: 20210809

REACTIONS (8)
  - Dry skin [Not Recovered/Not Resolved]
  - Bone pain [Not Recovered/Not Resolved]
  - Anxiety [Not Recovered/Not Resolved]
  - Dry eye [Not Recovered/Not Resolved]
  - Haemorrhage [Not Recovered/Not Resolved]
  - Night sweats [Not Recovered/Not Resolved]
  - Cerebral congestion [Not Recovered/Not Resolved]
  - Poor quality sleep [Not Recovered/Not Resolved]

NARRATIVE: CASE EVENT DATE: 20210609
